FAERS Safety Report 6257339-7 (Version None)
Quarter: 2009Q3

REPORT INFORMATION
  Report Type: 
  Country: None (occurrence: None)
  Receive Date: 20090706
  Receipt Date: 20090624
  Transmission Date: 20100115
  Serious: Yes (Hospitalization)
  Sender: FDA-Public Use
  Company Number: PHHO2009IT05882

PATIENT
  Sex: Female
  Weight: 56 kg

DRUGS (2)
  1. RAD 666 RAD+TAB [Suspect]
     Indication: LIVER TRANSPLANT
     Dosage: 3.75 MG / DAY
     Route: 048
     Dates: start: 20080513
  2. PROGRAF [Suspect]
     Indication: LIVER TRANSPLANT
     Dosage: UNK
     Route: 048
     Dates: start: 20080415, end: 20081209

REACTIONS (12)
  - ABDOMINAL PAIN [None]
  - BACTERIAL SEPSIS [None]
  - BACTEROIDES INFECTION [None]
  - ENDOMETRIAL CANCER [None]
  - ENDOMETRIAL DYSPLASIA [None]
  - ENDOMETRIAL HYPERPLASIA [None]
  - IMMUNOSUPPRESSANT DRUG LEVEL INCREASED [None]
  - INFERTILITY [None]
  - PYREXIA [None]
  - RADICAL HYSTERECTOMY [None]
  - SALPINGO-OOPHORECTOMY [None]
  - URETERIC FISTULA [None]
